FAERS Safety Report 4824981-7 (Version None)
Quarter: 2005Q4

REPORT INFORMATION
  Report Type: 
  Country: None (occurrence: None)
  Receive Date: 20051014
  Receipt Date: 20050812
  Transmission Date: 20060501
  Serious: No
  Sender: FDA-Public Use
  Company Number: 2005SP002336

PATIENT
  Age: 60 Year
  Sex: Female
  Weight: 136.0791 kg

DRUGS (2)
  1. LUNESTA [Suspect]
     Dosage: 3 MG;HS;ORAL, 3 MG;1X;ORAL
     Route: 048
     Dates: start: 20050526
  2. LUNESTA [Suspect]
     Dosage: 3 MG;HS;ORAL, 3 MG;1X;ORAL
     Route: 048
     Dates: start: 20050526

REACTIONS (1)
  - APATHY [None]
